FAERS Safety Report 18603650 (Version 2)
Quarter: 2020Q4

REPORT INFORMATION
  Report Type: Report from Study
  Country: US (occurrence: US)
  Receive Date: 20201211
  Receipt Date: 20201228
  Transmission Date: 20210114
  Serious: Yes (Hospitalization)
  Sender: FDA-Public Use
  Company Number: US-JNJFOC-20201216821

PATIENT
  Age: 25 Year
  Sex: Female
  Weight: 71.73 kg

DRUGS (3)
  1. SIMPONI [Concomitant]
     Active Substance: GOLIMUMAB
     Route: 065
  2. INFLIXIMAB, RECOMBINANT [Suspect]
     Active Substance: INFLIXIMAB
     Indication: INFLAMMATORY BOWEL DISEASE
     Route: 030
     Dates: start: 20030201
  3. STELARA [Concomitant]
     Active Substance: USTEKINUMAB
     Route: 065

REACTIONS (3)
  - Ileus [Recovered/Resolved]
  - Stomal hernia [Recovered/Resolved]
  - Intestinal fistula [Recovered/Resolved]

NARRATIVE: CASE EVENT DATE: 202009
